FAERS Safety Report 23296019 (Version 2)
Quarter: 2023Q4

REPORT INFORMATION
  Report Type: Spontaneous
  Country: JP (occurrence: JP)
  Receive Date: 20231214
  Receipt Date: 20231229
  Transmission Date: 20240109
  Serious: Yes (Other)
  Sender: FDA-Public Use
  Company Number: JP-UCBJ-CD202312557UCBPHAPROD

PATIENT
  Age: 5 Decade
  Sex: Female

DRUGS (4)
  1. LEVETIRACETAM [Suspect]
     Active Substance: LEVETIRACETAM
     Indication: Epilepsy
     Dosage: 2.1 GRAM
     Route: 041
  2. POTASSIUM BROMIDE [Suspect]
     Active Substance: POTASSIUM BROMIDE
     Indication: Product used for unknown indication
     Dosage: 3.5 GRAM
  3. POTASSIUM BROMIDE [Suspect]
     Active Substance: POTASSIUM BROMIDE
     Dosage: 3 GRAM
  4. VALPROATE SODIUM [Concomitant]
     Active Substance: VALPROATE SODIUM
     Indication: Product used for unknown indication
     Dosage: 1.45 GRAM

REACTIONS (1)
  - Seizure [Recovered/Resolved]
